FAERS Safety Report 9817615 (Version 1)
Quarter: 2013Q4

REPORT INFORMATION
  Report Type: Spontaneous
  Country: US (occurrence: None)
  Receive Date: 20131223
  Receipt Date: 20131223
  Transmission Date: 20140711
  Serious: No
  Sender: FDA-Public Use
  Company Number: 219227

PATIENT
  Age: 69 Year
  Sex: Female

DRUGS (1)
  1. PICATO GEL [Suspect]
     Indication: PRECANCEROUS CELLS PRESENT
     Route: 061
     Dates: start: 20120924

REACTIONS (3)
  - Burning sensation [None]
  - Erythema [None]
  - Pruritus [None]
